FAERS Safety Report 5456465-X (Version None)
Quarter: 2007Q3

REPORT INFORMATION
  Report Type: 
  Country: None (occurrence: None)
  Receive Date: 20070914
  Receipt Date: 20070914
  Transmission Date: 20080115
  Serious: Yes (Other)
  Sender: FDA-Public Use
  Company Number: None

PATIENT
  Sex: Female
  Weight: 68.856 kg

DRUGS (1)
  1. INDERAL [Suspect]
     Indication: MIGRAINE
     Dosage: 60MG ONE QD PO
     Route: 048
     Dates: start: 20070613, end: 20070901

REACTIONS (2)
  - DRUG EFFECT DECREASED [None]
  - PHARMACEUTICAL PRODUCT COMPLAINT [None]
